FAERS Safety Report 6343305-X (Version None)
Quarter: 2009Q3

REPORT INFORMATION
  Report Type: 
  Country: None (occurrence: None)
  Receive Date: 20090908
  Receipt Date: 20090828
  Transmission Date: 20100115
  Serious: Yes (Hospitalization)
  Sender: FDA-Public Use
  Company Number: PHHY2009GB37135

PATIENT
  Age: 60 Year
  Sex: Female

DRUGS (2)
  1. TEGRETOL [Suspect]
     Dosage: UPTO 600 MG/DAY
  2. TEGRETOL [Suspect]
     Dosage: 300 MG/DAY

REACTIONS (3)
  - ALOPECIA [None]
  - EMOTIONAL DISTRESS [None]
  - SEDATION [None]
